FAERS Safety Report 9058491 (Version 1)
Quarter: 2013Q1

REPORT INFORMATION
  Report Type: Spontaneous
  Country: US (occurrence: None)
  Receive Date: 20130205
  Receipt Date: 20130205
  Transmission Date: 20140127
  Serious: No
  Sender: FDA-Public Use
  Company Number: None

PATIENT
  Age: 17 Year
  Sex: Male
  Weight: 58.06 kg

DRUGS (1)
  1. CARBAMAZEPINE [Suspect]
     Route: 048
     Dates: start: 20121218, end: 20130108

REACTIONS (1)
  - Drug eruption [None]
